FAERS Safety Report 10883150 (Version 2)
Quarter: 2015Q2

REPORT INFORMATION
  Report Type: Report from Study
  Country: US (occurrence: US)
  Receive Date: 20150303
  Receipt Date: 20150403
  Transmission Date: 20150821
  Serious: Yes (Hospitalization)
  Sender: FDA-Public Use
  Company Number: US-GLAXOSMITHKLINE-US2015GSK025244

PATIENT
  Age: 67 Year
  Sex: Male
  Weight: 89.8 kg

DRUGS (8)
  1. GSK2141795 [Suspect]
     Active Substance: UPROSERTIB
     Indication: PAPILLARY THYROID CANCER
     Dosage: 50 MG, QD
     Route: 048
     Dates: start: 20141017
  2. METFORMIN [Concomitant]
     Active Substance: METFORMIN HYDROCHLORIDE
  3. PROCHLORPERAZINE. [Concomitant]
     Active Substance: PROCHLORPERAZINE
  4. LEVOTHYROXINE [Concomitant]
     Active Substance: LEVOTHYROXINE
  5. LORAZEPAM. [Concomitant]
     Active Substance: LORAZEPAM
  6. ALBUTEROL. [Concomitant]
     Active Substance: ALBUTEROL
  7. MIRTAZAPINE. [Concomitant]
     Active Substance: MIRTAZAPINE
  8. DABRAFENIB [Suspect]
     Active Substance: DABRAFENIB
     Indication: PAPILLARY THYROID CANCER
     Dosage: 150 MG, BID
     Route: 048
     Dates: start: 20141017

REACTIONS (1)
  - Skin haemorrhage [Recovered/Resolved with Sequelae]

NARRATIVE: CASE EVENT DATE: 20141128
